FAERS Safety Report 5968299-8 (Version None)
Quarter: 2008Q4

REPORT INFORMATION
  Report Type: 
  Country: None (occurrence: None)
  Receive Date: 20081126
  Receipt Date: 20081117
  Transmission Date: 20090506
  Serious: Yes (Hospitalization)
  Sender: FDA-Public Use
  Company Number: FR-ASTRAZENECA-2008CG00750

PATIENT
  Age: 23508 Day
  Sex: Male
  Weight: 78 kg

DRUGS (9)
  1. MOPRAL [Suspect]
     Indication: PROPHYLAXIS
     Route: 048
  2. DIAMICRON [Concomitant]
     Indication: DIABETES MELLITUS
  3. LODOZ [Concomitant]
     Indication: HYPERTENSION
  4. PRAVASTATIN [Concomitant]
     Indication: HYPERCHOLESTEROLAEMIA
  5. METFORMIN [Concomitant]
     Indication: DIABETES MELLITUS
  6. PYOSTACINE [Concomitant]
     Dates: start: 20070101
  7. VANCOMYCIN [Concomitant]
     Dates: start: 20070101
  8. CIPROFLOXACIN HYDROCHLORIDE [Concomitant]
     Dates: start: 20070101
  9. RIFAMPICIN [Concomitant]
     Dates: start: 20070101

REACTIONS (1)
  - ACUTE GENERALISED EXANTHEMATOUS PUSTULOSIS [None]
